FAERS Safety Report 18188273 (Version 1)
Quarter: 2020Q3

REPORT INFORMATION
  Report Type: Spontaneous
  Country: US (occurrence: US)
  Receive Date: 20200824
  Receipt Date: 20200824
  Transmission Date: 20201103
  Serious: Yes (Other)
  Sender: FDA-Public Use
  Company Number: US-SHIRE-US201927095AA

PATIENT
  Age: 50 Year
  Sex: Female

DRUGS (2)
  1. VPRIV [Suspect]
     Active Substance: VELAGLUCERASE ALFA
     Indication: GAUCHER^S DISEASE
     Dosage: 4400 UNITS, 1X/2WKS
     Route: 042
     Dates: start: 20190109
  2. VPRIV [Suspect]
     Active Substance: VELAGLUCERASE ALFA
     Dosage: UNK, 1X/2WKS
     Route: 042
     Dates: start: 20140123

REACTIONS (11)
  - Abdominal pain [Recovering/Resolving]
  - Complication associated with device [Unknown]
  - Urinary incontinence [Unknown]
  - Myelopathy [Unknown]
  - Vomiting [Unknown]
  - Diarrhoea [Unknown]
  - Pain in extremity [Unknown]
  - Dysphagia [Unknown]
  - Pyrexia [Unknown]
  - Catheter site swelling [Unknown]
  - Chest pain [Unknown]

NARRATIVE: CASE EVENT DATE: 20190731
